FAERS Safety Report 4269185-4 (Version None)
Quarter: 2004Q1

REPORT INFORMATION
  Report Type: 
  Country: None (occurrence: None)
  Receive Date: 20040113
  Receipt Date: 20040102
  Transmission Date: 20041129
  Serious: Yes (Death, Hospitalization)
  Sender: FDA-Public Use
  Company Number: US-GLAXOSMITHKLINE-A0492386A

PATIENT
  Age: 70 Year
  Sex: Male

DRUGS (6)
  1. AVANDIA [Suspect]
     Indication: DIABETES MELLITUS
     Dosage: 4MG TWICE PER DAY
     Route: 048
     Dates: start: 20000803, end: 20010628
  2. PAXIL [Concomitant]
  3. GLUCOTROL [Concomitant]
  4. TRAZODONE HCL [Concomitant]
  5. PRILOSEC [Concomitant]
  6. VIAGRA [Concomitant]

REACTIONS (17)
  - CHOLELITHIASIS [None]
  - DIABETES MELLITUS INADEQUATE CONTROL [None]
  - DIALYSIS [None]
  - DIARRHOEA [None]
  - DIZZINESS [None]
  - HAEMOGLOBIN DECREASED [None]
  - HAEMOPTYSIS [None]
  - HEPATIC ENCEPHALOPATHY [None]
  - HEPATIC FAILURE [None]
  - HEPATITIS [None]
  - HYPOTENSION [None]
  - METABOLIC ACIDOSIS [None]
  - PERITONITIS [None]
  - RENAL FAILURE [None]
  - SEPSIS [None]
  - VARICES OESOPHAGEAL [None]
  - WEIGHT DECREASED [None]
